FAERS Safety Report 13152824 (Version 1)
Quarter: 2017Q1

REPORT INFORMATION
  Report Type: Spontaneous
  Country: AT (occurrence: AT)
  Receive Date: 20170126
  Receipt Date: 20170126
  Transmission Date: 20170428
  Serious: Yes (Hospitalization)
  Sender: FDA-Public Use
  Company Number: AT-ASTRAZENECA-2017SE05363

PATIENT
  Sex: Male

DRUGS (2)
  1. LYRICA [Concomitant]
     Active Substance: PREGABALIN
     Dosage: 225 MG IN THE EVENING
  2. SEROQUEL [Suspect]
     Active Substance: QUETIAPINE FUMARATE
     Dosage: 200 MG SPLITTED TO LATE AFTERNOON AND EVENING
     Route: 048

REACTIONS (4)
  - Confusional state [Unknown]
  - Urinary tract infection [Unknown]
  - Dementia [Unknown]
  - Electrocardiogram QT prolonged [Unknown]
